FAERS Safety Report 5378431-5 (Version None)
Quarter: 2007Q2

REPORT INFORMATION
  Report Type: 
  Country: None (occurrence: None)
  Receive Date: 20070530
  Receipt Date: 20070221
  Transmission Date: 20071010
  Serious: Yes (Hospitalization)
  Sender: FDA-Public Use
  Company Number: 2007PV030434

PATIENT
  Sex: Male
  Weight: 136.0791 kg

DRUGS (3)
  1. BYETTA [Suspect]
     Indication: DIABETES MELLITUS NON-INSULIN-DEPENDENT
     Dosage: 5 MCG;BID;SC
     Route: 058
     Dates: start: 20061001, end: 20070101
  2. LANTUS [Concomitant]
  3. METFORMIN HCL [Concomitant]

REACTIONS (3)
  - DEHYDRATION [None]
  - RENAL FAILURE [None]
  - VOMITING [None]
